FAERS Safety Report 18248303 (Version 1)
Quarter: 2020Q3

REPORT INFORMATION
  Report Type: Spontaneous
  Country: CA (occurrence: CA)
  Receive Date: 20200909
  Receipt Date: 20200909
  Transmission Date: 20201103
  Serious: Yes (Hospitalization, Other)
  Sender: FDA-Public Use
  Company Number: CA-ASTRAZENECA-2020SF11813

PATIENT
  Age: 77 Year
  Sex: Female

DRUGS (134)
  1. ACEBUTOLOL HYDROCHLORIDE. [Suspect]
     Active Substance: ACEBUTOLOL HYDROCHLORIDE
     Indication: CHEST PAIN
     Route: 065
  2. AMLODIPINE [Suspect]
     Active Substance: AMLODIPINE BESYLATE
     Indication: HYPERTENSION
     Dosage: UNKNOWN
     Route: 065
  3. APO?CARBAMAZEPINE [Suspect]
     Active Substance: CARBAMAZEPINE
     Indication: PROPHYLAXIS
     Dosage: UNKNOWN
     Route: 065
  4. APO?CARBAMAZEPINE [Suspect]
     Active Substance: CARBAMAZEPINE
     Indication: PROPHYLAXIS
     Dosage: 200.0MG UNKNOWN
     Route: 065
  5. APO?DILTIAZ [Suspect]
     Active Substance: DILTIAZEM HYDROCHLORIDE
     Indication: CORONARY ARTERY DISEASE
     Route: 065
  6. APO?DILTIAZ [Suspect]
     Active Substance: DILTIAZEM HYDROCHLORIDE
     Indication: ANGINA PECTORIS
     Dosage: UNKNOWN
     Route: 065
  7. APO?DILTIAZ [Suspect]
     Active Substance: DILTIAZEM HYDROCHLORIDE
     Indication: CORONARY ARTERY DISEASE
     Dosage: UNKNOWN
     Route: 065
  8. APO?OXAZEPAM [Suspect]
     Active Substance: OXAZEPAM
     Indication: INSOMNIA
     Route: 065
  9. CYCLOBENZAPRINE. [Suspect]
     Active Substance: CYCLOBENZAPRINE
     Indication: SEIZURE PROPHYLAXIS
     Route: 065
  10. CYCLOBENZAPRINE. [Suspect]
     Active Substance: CYCLOBENZAPRINE
     Indication: FIBROMYALGIA
     Route: 065
  11. CYCLOBENZAPRINE. [Suspect]
     Active Substance: CYCLOBENZAPRINE
     Indication: SEIZURE
     Route: 065
  12. DILTIAZEM. [Suspect]
     Active Substance: DILTIAZEM
     Indication: CORONARY ARTERY DISEASE
     Dosage: UNKNOWN
     Route: 065
  13. GALANTAMINE. [Suspect]
     Active Substance: GALANTAMINE
     Indication: DEMENTIA
     Route: 065
  14. LEVOFLOXACIN. [Suspect]
     Active Substance: LEVOFLOXACIN
     Indication: URINARY TRACT INFECTION
     Route: 065
  15. NITROGLYCERIN. [Suspect]
     Active Substance: NITROGLYCERIN
     Indication: CHEST PAIN
     Dosage: 4.0MG UNKNOWN
     Route: 065
  16. NITROGLYCERIN. [Suspect]
     Active Substance: NITROGLYCERIN
     Indication: ANGINA PECTORIS
     Dosage: 1.0DF UNKNOWN
     Route: 065
  17. OXAZEPAM. [Suspect]
     Active Substance: OXAZEPAM
     Indication: CORONARY ARTERY DISEASE
     Dosage: UNKNOWN
     Route: 065
  18. OXAZEPAM. [Suspect]
     Active Substance: OXAZEPAM
     Indication: INSOMNIA
     Dosage: UNKNOWN
     Route: 065
  19. QUINAPRIL HYDROCHLORIDE. [Suspect]
     Active Substance: QUINAPRIL HYDROCHLORIDE
     Indication: CORONARY ARTERY DISEASE
     Route: 065
  20. QUINAPRIL HYDROCHLORIDE. [Suspect]
     Active Substance: QUINAPRIL HYDROCHLORIDE
     Indication: CORONARY ARTERY DISEASE
     Route: 065
  21. TIOTROPIUM BROMIDE [Suspect]
     Active Substance: TIOTROPIUM BROMIDE
     Indication: PRODUCT USED FOR UNKNOWN INDICATION
     Dosage: UNKNOWN
     Route: 065
  22. CRANBERRY. [Concomitant]
     Active Substance: CRANBERRY
     Indication: BLADDER DISORDER
     Route: 065
  23. AMITRIPTYLINE [Suspect]
     Active Substance: AMITRIPTYLINE
     Indication: PRODUCT USED FOR UNKNOWN INDICATION
     Dosage: 50.0MG UNKNOWN
     Route: 065
  24. AMLODIPINE [Suspect]
     Active Substance: AMLODIPINE BESYLATE
     Indication: ANGINA PECTORIS
     Route: 065
  25. APO?CARBAMAZEPINE [Suspect]
     Active Substance: CARBAMAZEPINE
     Indication: FIBROMYALGIA
     Dosage: UNKNOWN
     Route: 065
  26. CYCLOBENZAPRINE. [Suspect]
     Active Substance: CYCLOBENZAPRINE
     Indication: SEIZURE
     Route: 065
  27. DILTIAZEM. [Suspect]
     Active Substance: DILTIAZEM
     Indication: CORONARY ARTERY DISEASE
     Dosage: UNKNOWN
     Route: 065
  28. GLUCOSAMINE [Suspect]
     Active Substance: GLUCOSAMINE
     Indication: ARTHRITIS
     Route: 065
  29. LEVOTHYROXINE. [Suspect]
     Active Substance: LEVOTHYROXINE
     Indication: THYROID DISORDER
     Route: 065
  30. NITROGLYCERIN. [Suspect]
     Active Substance: NITROGLYCERIN
     Indication: ANGINA PECTORIS
     Dosage: 0.6MG UNKNOWN
     Route: 065
  31. OXAZEPAM. [Suspect]
     Active Substance: OXAZEPAM
     Indication: HYPERTENSION
     Dosage: UNKNOWN
     Route: 065
  32. OXAZEPAM. [Suspect]
     Active Substance: OXAZEPAM
     Indication: HYPERTENSION
     Dosage: 15.0MG UNKNOWN
     Route: 065
  33. ACETAMINOPHEN. [Concomitant]
     Active Substance: ACETAMINOPHEN
     Indication: PAIN
     Dosage: 600.0MG UNKNOWN
  34. VACCINIUM MACROCARPON [Concomitant]
     Active Substance: CRANBERRY
     Indication: PRODUCT USED FOR UNKNOWN INDICATION
  35. AMITRIPTYLINE [Suspect]
     Active Substance: AMITRIPTYLINE
     Indication: INSOMNIA
     Dosage: 50.0MG UNKNOWN
     Route: 065
  36. AMLODIPINE [Suspect]
     Active Substance: AMLODIPINE BESYLATE
     Indication: CORONARY ARTERY DISEASE
     Dosage: UNKNOWN
     Route: 065
  37. AMLODIPINE [Suspect]
     Active Substance: AMLODIPINE BESYLATE
     Indication: HYPERTENSION
     Dosage: UNKNOWN
     Route: 065
  38. APO?CYCLOBENZAPRINE [Suspect]
     Active Substance: CYCLOBENZAPRINE
     Indication: FIBROMYALGIA
     Route: 065
  39. APO?DILTIAZ [Suspect]
     Active Substance: DILTIAZEM HYDROCHLORIDE
     Indication: HYPERTENSION
     Dosage: UNKNOWN
     Route: 065
  40. CARBAMAZEPINE. [Suspect]
     Active Substance: CARBAMAZEPINE
     Indication: SEIZURE
     Route: 065
  41. CARBAMAZEPINE. [Suspect]
     Active Substance: CARBAMAZEPINE
     Indication: SEIZURE
     Route: 065
  42. CARBAMAZEPINE. [Suspect]
     Active Substance: CARBAMAZEPINE
     Indication: PRODUCT USED FOR UNKNOWN INDICATION
     Route: 065
  43. CYCLOBENZAPRINE. [Suspect]
     Active Substance: CYCLOBENZAPRINE
     Indication: FIBROMYALGIA
     Route: 065
  44. CYCLOBENZAPRINE. [Suspect]
     Active Substance: CYCLOBENZAPRINE
     Indication: FIBROMYALGIA
     Route: 065
  45. DILTIAZEM. [Suspect]
     Active Substance: DILTIAZEM
     Indication: CHEST PAIN
     Dosage: UNKNOWN
     Route: 065
  46. DIPYRIDAMOLE. [Suspect]
     Active Substance: DIPYRIDAMOLE
     Indication: CEREBROVASCULAR ACCIDENT
     Route: 065
  47. FUROSEMIDE. [Suspect]
     Active Substance: FUROSEMIDE
     Indication: OEDEMA
     Route: 065
  48. FUROSEMIDE. [Suspect]
     Active Substance: FUROSEMIDE
     Indication: OEDEMA
     Route: 065
  49. NITROGLYCERIN. [Suspect]
     Active Substance: NITROGLYCERIN
     Indication: CORONARY ARTERY DISEASE
     Dosage: 1.0DF UNKNOWN
     Route: 065
  50. OXAZEPAM. [Suspect]
     Active Substance: OXAZEPAM
     Indication: INSOMNIA
     Dosage: UNKNOWN
     Route: 065
  51. OXAZEPAM. [Suspect]
     Active Substance: OXAZEPAM
     Indication: INSOMNIA
     Dosage: 15.0MG UNKNOWN
     Route: 065
  52. ZINC. [Concomitant]
     Active Substance: ZINC
     Indication: PRODUCT USED FOR UNKNOWN INDICATION
  53. AMITRIPTYLINE [Suspect]
     Active Substance: AMITRIPTYLINE
     Indication: INSOMNIA
     Dosage: 50.0MG UNKNOWN
     Route: 065
  54. AMLODIPINE [Suspect]
     Active Substance: AMLODIPINE BESYLATE
     Indication: CORONARY ARTERY DISEASE
     Dosage: UNKNOWN
     Route: 065
  55. CARBAMAZEPINE. [Suspect]
     Active Substance: CARBAMAZEPINE
     Indication: PRODUCT USED FOR UNKNOWN INDICATION
     Route: 065
  56. CARBAMAZEPINE. [Suspect]
     Active Substance: CARBAMAZEPINE
     Indication: SEIZURE PROPHYLAXIS
     Route: 065
  57. CYCLOBENZAPRINE. [Suspect]
     Active Substance: CYCLOBENZAPRINE
     Indication: PAIN
     Route: 065
  58. DILTIAZEM. [Suspect]
     Active Substance: DILTIAZEM
     Indication: CORONARY ARTERY DISEASE
     Dosage: 360.0MG UNKNOWN
     Route: 065
  59. DILTIAZEM. [Suspect]
     Active Substance: DILTIAZEM
     Indication: CHEST PAIN
     Dosage: 360.0MG UNKNOWN
     Route: 065
  60. LEVOTHYROXINE. [Suspect]
     Active Substance: LEVOTHYROXINE
     Indication: THYROID DISORDER
     Route: 065
  61. MORPHINE SULFATE. [Suspect]
     Active Substance: MORPHINE SULFATE
     Indication: PAIN
     Route: 065
  62. MORPHINE SULFATE. [Suspect]
     Active Substance: MORPHINE SULFATE
     Indication: FIBROMYALGIA
     Route: 065
  63. QUINAPRIL HYDROCHLORIDE. [Suspect]
     Active Substance: QUINAPRIL HYDROCHLORIDE
     Indication: ANGINA PECTORIS
     Route: 065
  64. SALBUTAMOL [Suspect]
     Active Substance: ALBUTEROL
     Indication: PRODUCT USED FOR UNKNOWN INDICATION
     Route: 065
  65. OMEPRAZOLE. [Suspect]
     Active Substance: OMEPRAZOLE
     Indication: DUODENAL ULCER
     Route: 048
  66. ACEBUTOLOL HYDROCHLORIDE. [Suspect]
     Active Substance: ACEBUTOLOL HYDROCHLORIDE
     Indication: CORONARY ARTERY DISEASE
     Route: 065
  67. AMLODIPINE [Suspect]
     Active Substance: AMLODIPINE BESYLATE
     Indication: ANGINA PECTORIS
     Dosage: UNKNOWN
     Route: 065
  68. APO?AMITRIPTYLINE [Suspect]
     Active Substance: AMITRIPTYLINE HYDROCHLORIDE
     Indication: INSOMNIA
     Route: 065
  69. AVA?FUROSEMIDE [Suspect]
     Active Substance: FUROSEMIDE SODIUM
     Indication: OEDEMA
     Route: 065
  70. CARBAMAZEPINE. [Suspect]
     Active Substance: CARBAMAZEPINE
     Indication: SEIZURE
     Route: 065
  71. CARBAMAZEPINE. [Suspect]
     Active Substance: CARBAMAZEPINE
     Indication: PRODUCT USED FOR UNKNOWN INDICATION
     Route: 065
  72. CYCLOBENZAPRINE. [Suspect]
     Active Substance: CYCLOBENZAPRINE
     Indication: SEIZURE PROPHYLAXIS
     Route: 065
  73. CYCLOBENZAPRINE. [Suspect]
     Active Substance: CYCLOBENZAPRINE
     Indication: SEIZURE PROPHYLAXIS
     Route: 065
  74. DILTIAZEM. [Suspect]
     Active Substance: DILTIAZEM
     Indication: HYPERTENSION
     Dosage: UNKNOWN
     Route: 065
  75. GLUCOSAMINE [Suspect]
     Active Substance: GLUCOSAMINE
     Indication: PAIN
     Route: 065
  76. GLUCOSAMINE [Suspect]
     Active Substance: GLUCOSAMINE
     Indication: PAIN
     Dosage: UNKNOWN
     Route: 065
  77. MAGNESIUM HYDROXIDE. [Suspect]
     Active Substance: MAGNESIUM HYDROXIDE
     Indication: CONSTIPATION
     Route: 065
  78. NITROGLYCERIN. [Suspect]
     Active Substance: NITROGLYCERIN
     Indication: CORONARY ARTERY DISEASE
     Dosage: 4.0MG UNKNOWN
     Route: 065
  79. NITROGLYCERIN. [Suspect]
     Active Substance: NITROGLYCERIN
     Indication: ANGINA PECTORIS
     Dosage: 4.0MG UNKNOWN
     Route: 065
  80. NITROGLYCERIN. [Suspect]
     Active Substance: NITROGLYCERIN
     Indication: CHEST PAIN
     Dosage: 1.0DF UNKNOWN
     Route: 065
  81. OXAZEPAM. [Suspect]
     Active Substance: OXAZEPAM
     Indication: CORONARY ARTERY DISEASE
     Dosage: UNKNOWN
     Route: 065
  82. OXAZEPAM. [Suspect]
     Active Substance: OXAZEPAM
     Indication: CORONARY ARTERY DISEASE
     Dosage: 15.0MG UNKNOWN
     Route: 065
  83. ROSUVASTATIN CALCIUM. [Suspect]
     Active Substance: ROSUVASTATIN CALCIUM
     Indication: PRODUCT USED FOR UNKNOWN INDICATION
     Route: 048
  84. ROSUVASTATIN CALCIUM. [Suspect]
     Active Substance: ROSUVASTATIN CALCIUM
     Indication: CEREBROVASCULAR ACCIDENT
     Route: 048
  85. ACEBUTOLOL HYDROCHLORIDE. [Suspect]
     Active Substance: ACEBUTOLOL HYDROCHLORIDE
     Indication: HYPERTENSION
     Route: 065
  86. ACEBUTOLOL HYDROCHLORIDE. [Suspect]
     Active Substance: ACEBUTOLOL HYDROCHLORIDE
     Indication: CHEST PAIN
     Route: 065
  87. ACEBUTOLOL HYDROCHLORIDE. [Suspect]
     Active Substance: ACEBUTOLOL HYDROCHLORIDE
     Indication: HYPERTENSION
     Route: 065
  88. AMLODIPINE [Suspect]
     Active Substance: AMLODIPINE BESYLATE
     Indication: CORONARY ARTERY DISEASE
     Route: 065
  89. APO?DILTIAZ [Suspect]
     Active Substance: DILTIAZEM HYDROCHLORIDE
     Indication: HYPERTENSION
     Route: 065
  90. APO?DILTIAZ [Suspect]
     Active Substance: DILTIAZEM HYDROCHLORIDE
     Indication: ANGINA PECTORIS
     Route: 065
  91. APO?DILTIAZ [Suspect]
     Active Substance: DILTIAZEM HYDROCHLORIDE
     Indication: HYPERTENSION
     Dosage: UNKNOWN
     Route: 065
  92. CARBAMAZEPINE. [Suspect]
     Active Substance: CARBAMAZEPINE
     Indication: SEIZURE PROPHYLAXIS
     Route: 065
  93. CYCLOBENZAPRINE. [Suspect]
     Active Substance: CYCLOBENZAPRINE
     Indication: PAIN
     Route: 065
  94. CYCLOBENZAPRINE. [Suspect]
     Active Substance: CYCLOBENZAPRINE
     Indication: FIBROMYALGIA
     Route: 065
  95. DILTIAZEM. [Suspect]
     Active Substance: DILTIAZEM
     Indication: HYPERTENSION
     Dosage: 360.0MG UNKNOWN
     Route: 065
  96. FUROSEMIDE. [Suspect]
     Active Substance: FUROSEMIDE
     Indication: PRODUCT USED FOR UNKNOWN INDICATION
     Route: 065
  97. GLUCOSAMINE [Suspect]
     Active Substance: GLUCOSAMINE
     Indication: ARTHRITIS
     Dosage: UNKNOWN
     Route: 065
  98. LEVOTHYROXINE. [Suspect]
     Active Substance: LEVOTHYROXINE
     Indication: RADIOACTIVE IODINE THERAPY
     Route: 065
  99. MORPHINE SULFATE. [Suspect]
     Active Substance: MORPHINE SULFATE
     Indication: FIBROMYALGIA
     Route: 065
  100. NITROGLYCERIN. [Suspect]
     Active Substance: NITROGLYCERIN
     Indication: CORONARY ARTERY DISEASE
     Dosage: 0.6MG UNKNOWN
     Route: 065
  101. QUINAPRIL HYDROCHLORIDE. [Suspect]
     Active Substance: QUINAPRIL HYDROCHLORIDE
     Indication: HYPERTENSION
     Route: 065
  102. QUINAPRIL HYDROCHLORIDE. [Suspect]
     Active Substance: QUINAPRIL HYDROCHLORIDE
     Indication: HYPERTENSION
     Route: 065
  103. QUINAPRIL HYDROCHLORIDE. [Suspect]
     Active Substance: QUINAPRIL HYDROCHLORIDE
     Indication: ANGINA PECTORIS
     Route: 065
  104. PLANTAGO INDICA [Concomitant]
     Indication: CONSTIPATION
  105. ROSUVASTATIN CALCIUM. [Suspect]
     Active Substance: ROSUVASTATIN CALCIUM
     Indication: PRODUCT USED FOR UNKNOWN INDICATION
     Route: 048
  106. ROSUVASTATIN CALCIUM. [Suspect]
     Active Substance: ROSUVASTATIN CALCIUM
     Indication: CEREBROVASCULAR ACCIDENT
     Route: 048
  107. ACEBUTOLOL HYDROCHLORIDE. [Suspect]
     Active Substance: ACEBUTOLOL HYDROCHLORIDE
     Indication: CORONARY ARTERY DISEASE
     Route: 065
  108. ACETAMINOPHEN (PARACETAMOL) CAFFEINE [Suspect]
     Active Substance: ACETAMINOPHEN\CAFFEINE
     Indication: PAIN
     Dosage: 650.0MG UNKNOWN
     Route: 065
  109. AMITRIPTYLINE [Suspect]
     Active Substance: AMITRIPTYLINE
     Indication: INSOMNIA
     Route: 065
  110. AMITRIPTYLINE [Suspect]
     Active Substance: AMITRIPTYLINE
     Indication: PRODUCT USED FOR UNKNOWN INDICATION
     Dosage: 50.0MG UNKNOWN
     Route: 065
  111. AMLODIPINE [Suspect]
     Active Substance: AMLODIPINE BESYLATE
     Indication: ANGINA PECTORIS
     Dosage: UNKNOWN
     Route: 065
  112. APO?CARBAMAZEPINE [Suspect]
     Active Substance: CARBAMAZEPINE
     Indication: FIBROMYALGIA
     Dosage: 200.0MG UNKNOWN
     Route: 065
  113. APO?DILTIAZ [Suspect]
     Active Substance: DILTIAZEM HYDROCHLORIDE
     Indication: ANGINA PECTORIS
     Dosage: UNKNOWN
     Route: 065
  114. CARBAMAZEPINE. [Suspect]
     Active Substance: CARBAMAZEPINE
     Indication: SEIZURE PROPHYLAXIS
     Route: 065
  115. CYCLOBENZAPRINE. [Suspect]
     Active Substance: CYCLOBENZAPRINE
     Indication: PAIN
     Route: 065
  116. DILTIAZEM. [Suspect]
     Active Substance: DILTIAZEM
     Indication: CHEST PAIN
     Dosage: UNKNOWN
     Route: 065
  117. FUROSEMIDE. [Suspect]
     Active Substance: FUROSEMIDE
     Indication: PRODUCT USED FOR UNKNOWN INDICATION
     Route: 065
  118. MORPHINE SULFATE. [Suspect]
     Active Substance: MORPHINE SULFATE
     Indication: PAIN
     Route: 065
  119. NITROGLYCERIN. [Suspect]
     Active Substance: NITROGLYCERIN
     Indication: CHEST PAIN
     Dosage: 0.6MG UNKNOWN
     Route: 065
  120. OXAZEPAM. [Suspect]
     Active Substance: OXAZEPAM
     Indication: HYPERTENSION
     Dosage: UNKNOWN
     Route: 065
  121. SALBUTAMOL [Suspect]
     Active Substance: ALBUTEROL
     Indication: PRODUCT USED FOR UNKNOWN INDICATION
     Dosage: 100.0MG UNKNOWN
     Route: 065
  122. AGGRENOX [Suspect]
     Active Substance: ASPIRIN\DIPYRIDAMOLE
     Indication: CEREBROVASCULAR ACCIDENT
     Route: 065
  123. AMITRIPTYLINE [Suspect]
     Active Substance: AMITRIPTYLINE
     Indication: PRODUCT USED FOR UNKNOWN INDICATION
     Route: 065
  124. AMLODIPINE [Suspect]
     Active Substance: AMLODIPINE BESYLATE
     Indication: HYPERTENSION
     Route: 065
  125. APO?DILTIAZ [Suspect]
     Active Substance: DILTIAZEM HYDROCHLORIDE
     Indication: CORONARY ARTERY DISEASE
     Dosage: UNKNOWN
     Route: 065
  126. BISACODYL. [Suspect]
     Active Substance: BISACODYL
     Indication: CONSTIPATION
     Dosage: 2.0DF UNKNOWN
     Route: 065
  127. CYCLOBENZAPRINE. [Suspect]
     Active Substance: CYCLOBENZAPRINE
     Indication: SEIZURE
     Route: 065
  128. CYCLOBENZAPRINE. [Suspect]
     Active Substance: CYCLOBENZAPRINE
     Indication: SEIZURE
     Route: 065
  129. CYCLOBENZAPRINE. [Suspect]
     Active Substance: CYCLOBENZAPRINE
     Indication: PAIN
     Route: 065
  130. CYCLOBENZAPRINE. [Suspect]
     Active Substance: CYCLOBENZAPRINE
     Indication: SEIZURE PROPHYLAXIS
     Route: 065
  131. DILTIAZEM. [Suspect]
     Active Substance: DILTIAZEM
     Indication: HYPERTENSION
     Dosage: UNKNOWN
     Route: 065
  132. LACTULOSE. [Suspect]
     Active Substance: LACTULOSE
     Indication: CONSTIPATION
     Dosage: 15.0MG UNKNOWN
     Route: 048
  133. LEVOTHYROXINE. [Suspect]
     Active Substance: LEVOTHYROXINE
     Indication: RADIOACTIVE IODINE THERAPY
     Route: 065
  134. SPIRIVA [Suspect]
     Active Substance: TIOTROPIUM BROMIDE MONOHYDRATE
     Indication: CHRONIC OBSTRUCTIVE PULMONARY DISEASE
     Dosage: 18.0MG UNKNOWN
     Route: 065

REACTIONS (14)
  - Creatinine renal clearance decreased [Recovered/Resolved]
  - Pain [Recovered/Resolved]
  - Toxicity to various agents [Recovered/Resolved]
  - Constipation [Recovered/Resolved]
  - Balance disorder [Recovered/Resolved]
  - Blood calcium decreased [Recovered/Resolved]
  - Depressed level of consciousness [Recovered/Resolved]
  - Hypotension [Recovered/Resolved]
  - Sedation complication [Recovered/Resolved]
  - Sedation [Recovered/Resolved]
  - Cognitive disorder [Recovered/Resolved]
  - Orthostatic hypotension [Recovered/Resolved]
  - Fall [Recovered/Resolved]
  - Mobility decreased [Recovered/Resolved]
